FAERS Safety Report 9106716 (Version 1)
Quarter: 2013Q1

REPORT INFORMATION
  Report Type: Report from Study
  Country: US (occurrence: US)
  Receive Date: 20130221
  Receipt Date: 20130221
  Transmission Date: 20140127
  Serious: Yes (Hospitalization)
  Sender: FDA-Public Use
  Company Number: US-ROCHE-1186598

PATIENT
  Age: 31 Year
  Sex: Female

DRUGS (1)
  1. NUTROPIN [Suspect]
     Indication: HYPOPITUITARISM
     Route: 058

REACTIONS (9)
  - Pleuritic pain [Unknown]
  - Local swelling [Unknown]
  - Alopecia [Unknown]
  - Hypertension [Unknown]
  - Injection site reaction [Unknown]
  - Menorrhagia [Unknown]
  - Swelling face [Unknown]
  - Dyspnoea [Unknown]
  - Face oedema [Unknown]
